FAERS Safety Report 7020083-2 (Version None)
Quarter: 2010Q3

REPORT INFORMATION
  Report Type: 
  Country: None (occurrence: None)
  Receive Date: 20100929
  Receipt Date: 20100917
  Transmission Date: 20110219
  Serious: Yes (Death, Hospitalization)
  Sender: FDA-Public Use
  Company Number: JP-BAYER-201014745BYL

PATIENT
  Age: 64 Year
  Sex: Male
  Weight: 54 kg

DRUGS (18)
  1. NEXAVAR [Suspect]
     Indication: RENAL CELL CARCINOMA
     Dosage: UNIT DOSE: 200 MG
     Route: 048
     Dates: start: 20090130, end: 20090910
  2. NEXAVAR [Suspect]
     Dosage: UNIT DOSE: 200 MG
     Route: 048
     Dates: start: 20090911, end: 20091110
  3. NEXAVAR [Suspect]
     Dosage: UNIT DOSE: 200 MG
     Route: 048
     Dates: start: 20091111
  4. ROHYPNOL [Concomitant]
     Route: 048
  5. ISODINE GARGLE [Concomitant]
     Route: 048
     Dates: start: 20090205
  6. LOXONIN [Concomitant]
     Route: 048
     Dates: start: 20090226
  7. MUCOSTA [Concomitant]
     Route: 048
     Dates: start: 20090226
  8. EURODIN [Concomitant]
     Route: 048
     Dates: start: 20090308
  9. MYSLEE [Concomitant]
     Route: 048
     Dates: start: 20090309
  10. TRANEXAMIC ACID [Concomitant]
     Route: 048
     Dates: start: 20090409
  11. ADONA [Concomitant]
     Route: 048
     Dates: start: 20090409
  12. PACIF [Concomitant]
     Route: 048
     Dates: start: 20090703
  13. NOVAMIN [Concomitant]
     Route: 048
     Dates: start: 20090703
  14. PRIMPERAN TAB [Concomitant]
     Route: 048
     Dates: start: 20090729
  15. TRAVELMIN [Concomitant]
     Route: 048
     Dates: start: 20090814
  16. SUMIFERON [Concomitant]
     Route: 065
     Dates: start: 20090731
  17. DECADRON [Concomitant]
     Route: 048
     Dates: start: 20090909
  18. KLARICID [Concomitant]
     Route: 048
     Dates: start: 20091123

REACTIONS (7)
  - DIARRHOEA [None]
  - HYPERTENSION [None]
  - HYPOTHYROIDISM [None]
  - MALAISE [None]
  - PALMAR-PLANTAR ERYTHRODYSAESTHESIA SYNDROME [None]
  - REFLUX OESOPHAGITIS [None]
  - RENAL CELL CARCINOMA [None]
